FAERS Safety Report 17596530 (Version 7)
Quarter: 2020Q3

REPORT INFORMATION
  Report Type: Report from Study
  Country: US (occurrence: US)
  Receive Date: 20200330
  Receipt Date: 20200907
  Transmission Date: 20201102
  Serious: Yes (Death, Other)
  Sender: FDA-Public Use
  Company Number: US-ASTELLAS-2019US001132

PATIENT
  Age: 64 Year
  Sex: Male

DRUGS (1)
  1. ENZALUTAMIDE [Suspect]
     Active Substance: ENZALUTAMIDE
     Indication: HORMONE-REFRACTORY PROSTATE CANCER
     Route: 048
     Dates: start: 20181204, end: 20200423

REACTIONS (12)
  - Drug ineffective [Unknown]
  - Chronic obstructive pulmonary disease [Fatal]
  - Myocardial infarction [Recovered/Resolved]
  - Cerebrovascular accident [Fatal]
  - Weight increased [Not Recovered/Not Resolved]
  - Cardiac disorder [Not Recovered/Not Resolved]
  - Fatigue [Not Recovered/Not Resolved]
  - Somnolence [Unknown]
  - Lung disorder [Not Recovered/Not Resolved]
  - Asthenia [Unknown]
  - Malignant neoplasm progression [Fatal]
  - Somnolence [Unknown]

NARRATIVE: CASE EVENT DATE: 201812
